FAERS Safety Report 4418379-3 (Version None)
Quarter: 2004Q3

REPORT INFORMATION
  Report Type: 
  Country: None (occurrence: None)
  Receive Date: 20040809
  Receipt Date: 20040408
  Transmission Date: 20050211
  Serious: No
  Sender: FDA-Public Use
  Company Number: US-GLAXOSMITHKLINE-A0506374A

PATIENT
  Age: 36 Year
  Sex: Female

DRUGS (4)
  1. PAXIL CR [Suspect]
     Indication: OBSESSIVE-COMPULSIVE DISORDER
     Dosage: 12.5MG PER DAY
     Route: 048
     Dates: start: 20040401
  2. ACYCLOVIR [Concomitant]
  3. PAIN MEDICATION [Concomitant]
  4. TOPAMAX [Concomitant]

REACTIONS (1)
  - DRUG INEFFECTIVE [None]
